FAERS Safety Report 13417458 (Version 1)
Quarter: 2017Q2

REPORT INFORMATION
  Report Type: Spontaneous
  Country: GB (occurrence: GB)
  Receive Date: 20170407
  Receipt Date: 20170407
  Transmission Date: 20170830
  Serious: Yes (Other)
  Sender: FDA-Public Use
  Company Number: GB-SANTEN-201700559

PATIENT
  Age: 81 Year
  Sex: Male

DRUGS (13)
  1. FUROSEMIDE. [Concomitant]
     Active Substance: FUROSEMIDE
     Dosage: 1 DF, 1/1DAYS
     Dates: start: 20170117, end: 20170214
  2. KETOCONAZOLE. [Concomitant]
     Active Substance: KETOCONAZOLE
     Dosage: UNK
     Dates: start: 20160725
  3. TILDIEM [Concomitant]
     Active Substance: DILTIAZEM HYDROCHLORIDE
     Dosage: 1 DF, 1/1 DAYS
     Dates: start: 20160725
  4. OFTAQUIX [Suspect]
     Active Substance: LEVOFLOXACIN
     Dosage: UNK
     Dates: start: 20160725
  5. PREDNISOLONE. [Concomitant]
     Active Substance: PREDNISOLONE
     Dosage: UNK
     Dates: start: 20160725
  6. SERETIDE [Concomitant]
     Active Substance: FLUTICASONE PROPIONATE\SALMETEROL XINAFOATE
     Dosage: 1 DF, 2/1 DAYS
     Route: 055
     Dates: start: 20170113
  7. FLUTICASONE. [Concomitant]
     Active Substance: FLUTICASONE
     Dosage: 2 DF, 2/1DAYS
     Route: 055
     Dates: start: 20160725, end: 20170113
  8. TERBINAFINE. [Concomitant]
     Active Substance: TERBINAFINE
     Dosage: 1 DF, 1/1 DAYS
     Dates: start: 20160725
  9. CODEINE PHOSPHATE [Concomitant]
     Active Substance: CODEINE PHOSPHATE
     Dosage: UNK
     Dates: start: 20161229, end: 20170105
  10. MACROGOL [Concomitant]
     Active Substance: POLYETHYLENE GLYCOLS
     Dosage: 1 DF AS NECESSARY
     Dates: start: 20161229, end: 20170112
  11. VENTOLIN [Concomitant]
     Active Substance: ALBUTEROL SULFATE
     Dosage: 2 DF AS NECESSARY
     Dates: start: 20160725
  12. LANSOPRAZOLE WINTHROP [Concomitant]
     Active Substance: LANSOPRAZOLE
     Dosage: 1 DF, 1/1 DAYS
     Dates: start: 20160725
  13. DOXYCYCLINE. [Concomitant]
     Active Substance: DOXYCYCLINE
     Dosage: 1 DF, 2/1DAYS
     Dates: start: 20170314

REACTIONS (3)
  - Rash [Unknown]
  - Tremor [Unknown]
  - Hallucination [Recovered/Resolved]

NARRATIVE: CASE EVENT DATE: 20170323
